FAERS Safety Report 7160331-1 (Version None)
Quarter: 2010Q4

REPORT INFORMATION
  Report Type: 
  Country: None (occurrence: None)
  Receive Date: 20101214
  Receipt Date: 20091202
  Transmission Date: 20110411
  Serious: Yes (Other)
  Sender: FDA-Public Use
  Company Number: US-AMGEN-QUU378149

PATIENT

DRUGS (2)
  1. ENBREL [Suspect]
     Indication: RHEUMATOID ARTHRITIS
     Dosage: 50 MG, QWK
     Route: 058
  2. LEFLUNOMIDE [Concomitant]
     Dosage: 20 MG, QD
     Route: 048

REACTIONS (7)
  - ACNE [None]
  - ALOPECIA [None]
  - CHEST PAIN [None]
  - EYE DISORDER [None]
  - EYE SWELLING [None]
  - RHEUMATOID ARTHRITIS [None]
  - WEIGHT INCREASED [None]
